FAERS Safety Report 8495464-0 (Version None)
Quarter: 2012Q3

REPORT INFORMATION
  Report Type: 
  Country: None (occurrence: None)
  Receive Date: 20120709
  Receipt Date: 20120702
  Transmission Date: 20120928
  Serious: Yes (Other)
  Sender: FDA-Public Use
  Company Number: US-AMGEN-US361723

PATIENT
  Age: 50 Year
  Sex: Female
  Weight: 69.9 kg

DRUGS (3)
  1. NPLATE [Suspect]
     Dosage: UNK
     Dates: start: 20081006
  2. NPLATE [Suspect]
     Dosage: 373 MUG/KG, UNK
     Dates: end: 20090706
  3. NPLATE [Suspect]
     Indication: IDIOPATHIC THROMBOCYTOPENIC PURPURA
     Dosage: 62 MUG, QWK
     Dates: start: 20080929, end: 20090521

REACTIONS (1)
  - THERAPEUTIC RESPONSE DECREASED [None]
